FAERS Safety Report 10085958 (Version 1)
Quarter: 2014Q2

REPORT INFORMATION
  Report Type: Spontaneous
  Country: TR (occurrence: None)
  Receive Date: 20140416
  Receipt Date: 20140416
  Transmission Date: 20141212
  Serious: Yes (Hospitalization)
  Sender: FDA-Public Use
  Company Number: VAL_03069_2014

PATIENT
  Age: 45 Year
  Sex: Male

DRUGS (4)
  1. METOPROLOL TARTRATE [Suspect]
     Indication: PALPITATIONS
  2. METOPROLOL TARTRATE [Suspect]
     Indication: DYSPNOEA
  3. PROPAFENONE (PROPAFENONE) [Suspect]
     Indication: PALPITATIONS
  4. PROPAFENONE (PROPAFENONE) [Suspect]
     Indication: DYSPNOEA

REACTIONS (2)
  - Tachycardia [None]
  - Atrioventricular block [None]
